FAERS Safety Report 15885582 (Version 1)
Quarter: 2019Q1

REPORT INFORMATION
  Report Type: Spontaneous
  Country: FR (occurrence: FR)
  Receive Date: 20190129
  Receipt Date: 20190129
  Transmission Date: 20190417
  Serious: Yes (Hospitalization)
  Sender: FDA-Public Use
  Company Number: FR-MYLANLABS-2019M1007575

PATIENT
  Age: 19 Year
  Sex: Female

DRUGS (6)
  1. VENLAFAXINE [Suspect]
     Active Substance: VENLAFAXINE HYDROCHLORIDE
     Indication: DEPRESSION
     Dosage: 1 DOSAGE FORM, UNK
     Route: 048
     Dates: start: 20180524, end: 20180620
  2. SERESTA [Concomitant]
     Active Substance: OXAZEPAM
     Indication: DEPRESSION
     Dosage: 1 DOSAGE FORM, UNK
     Route: 048
     Dates: start: 20180523
  3. QUETIAPINE MYLAN [Suspect]
     Active Substance: QUETIAPINE
     Indication: DEPRESSION
     Dosage: 1 DOSAGE FORM, UNK
     Route: 048
     Dates: start: 20180523, end: 20180618
  4. LOXAPAC                            /00401801/ [Concomitant]
     Active Substance: LOXAPINE
     Indication: DEPRESSION
     Dosage: 1 DOSAGE FORM, UNK
     Route: 048
     Dates: start: 20180523
  5. LAMOTRIGINE ARROW [Suspect]
     Active Substance: LAMOTRIGINE
     Indication: DEPRESSION
     Dosage: 1 DOSAGE FORM, UNK
     Route: 048
     Dates: start: 20180523, end: 20180615
  6. ATARAX [Suspect]
     Active Substance: HYDROXYZINE HYDROCHLORIDE
     Indication: DEPRESSION
     Dosage: 1 DOSAGE FORM, UNK
     Route: 048
     Dates: start: 20180523, end: 20180620

REACTIONS (3)
  - Pruritus [Recovered/Resolved]
  - Asthenia [Recovered/Resolved]
  - Hepatitis [Recovered/Resolved]

NARRATIVE: CASE EVENT DATE: 201806
